FAERS Safety Report 9509460 (Version 2)
Quarter: 2013Q3

REPORT INFORMATION
  Report Type: Spontaneous
  Country: US (occurrence: US)
  Receive Date: 20130909
  Receipt Date: 20130909
  Transmission Date: 20140515
  Serious: No
  Sender: FDA-Public Use
  Company Number: US-BRISTOL-MYERS SQUIBB COMPANY-18965236

PATIENT
  Age: 39 Year
  Sex: Male

DRUGS (3)
  1. ABILIFY [Suspect]
     Indication: DEPRESSION
     Dosage: DOSE INCREASED TO 5MG FOR 5 DAYS?STRAT DATE : MAY?STOP DATE : JUNE
     Route: 048
     Dates: end: 20130523
  2. KLONOPIN [Concomitant]
  3. EFFEXOR [Concomitant]

REACTIONS (2)
  - Dysphemia [Recovering/Resolving]
  - Tremor [Recovered/Resolved]
